FAERS Safety Report 5953520-2 (Version None)
Quarter: 2008Q4

REPORT INFORMATION
  Report Type: 
  Country: None (occurrence: None)
  Receive Date: 20081114
  Receipt Date: 20081107
  Transmission Date: 20090506
  Serious: Yes (Other)
  Sender: FDA-Public Use
  Company Number: PHHY2008JP27835

PATIENT
  Age: 38 Year
  Sex: Male

DRUGS (2)
  1. TEGRETOL [Suspect]
     Indication: HEADACHE
     Dosage: 200 MG, UNK
     Route: 048
     Dates: start: 20081105, end: 20081106
  2. LOXONIN [Concomitant]
     Indication: HEADACHE
     Dosage: UNK
     Route: 048
     Dates: start: 20081105

REACTIONS (1)
  - HEARING IMPAIRED [None]
